FAERS Safety Report 24424755 (Version 4)
Quarter: 2024Q4

REPORT INFORMATION
  Report Type: Spontaneous
  Country: CL (occurrence: CL)
  Receive Date: 20241010
  Receipt Date: 20241210
  Transmission Date: 20250114
  Serious: No
  Sender: PFIZER
  Company Number: CL-PFIZER INC-PV202400129890

PATIENT
  Age: 14 Year
  Sex: Male

DRUGS (1)
  1. GENOTROPIN [Suspect]
     Active Substance: SOMATROPIN

REACTIONS (4)
  - Device mechanical issue [Unknown]
  - Device issue [Unknown]
  - Device information output issue [Unknown]
  - Drug dose omission by device [Unknown]
